FAERS Safety Report 14574025 (Version 1)
Quarter: 2018Q1

REPORT INFORMATION
  Report Type: Spontaneous
  Country: JP (occurrence: JP)
  Receive Date: 20180226
  Receipt Date: 20180226
  Transmission Date: 20180509
  Serious: Yes (Hospitalization, Other)
  Sender: FDA-Public Use
  Company Number: JP-PFIZER INC-2018077070

PATIENT
  Age: 49 Year
  Sex: Male

DRUGS (4)
  1. ALPRAZOLAM. [Suspect]
     Active Substance: ALPRAZOLAM
     Indication: DISCOMFORT
     Dosage: 2.8 MG, DAILY
     Route: 048
  2. ALPRAZOLAM. [Suspect]
     Active Substance: ALPRAZOLAM
     Indication: ANXIETY
  3. ETIZOLAM [Suspect]
     Active Substance: ETIZOLAM
     Indication: ANXIETY
  4. ETIZOLAM [Suspect]
     Active Substance: ETIZOLAM
     Indication: DISCOMFORT
     Dosage: 3.5 MG, DAILY
     Route: 048

REACTIONS (2)
  - Dementia [Unknown]
  - Drug administration error [Unknown]
